FAERS Safety Report 21203693 (Version 6)
Quarter: 2023Q1

REPORT INFORMATION
  Report Type: Report from Study
  Country: US (occurrence: US)
  Receive Date: 20220811
  Receipt Date: 20230216
  Transmission Date: 20230418
  Serious: Yes (Other)
  Sender: FDA-Public Use
  Company Number: US-HORIZON THERAPEUTICS-HZN-2022-006059

PATIENT

DRUGS (1)
  1. TEPEZZA [Suspect]
     Active Substance: TEPROTUMUMAB-TRBW
     Indication: Endocrine ophthalmopathy
     Dosage: FIRST INFUSION
     Route: 042
     Dates: start: 20220701

REACTIONS (4)
  - Angioedema [Unknown]
  - Mixed deafness [Not Recovered/Not Resolved]
  - Ear swelling [Unknown]
  - Acoustic stimulation tests abnormal [Not Recovered/Not Resolved]

NARRATIVE: CASE EVENT DATE: 20220807
